FAERS Safety Report 25267750 (Version 5)
Quarter: 2025Q2

REPORT INFORMATION
  Report Type: Report from Study
  Country: US (occurrence: US)
  Receive Date: 20250505
  Receipt Date: 20250624
  Transmission Date: 20250716
  Serious: Yes (Hospitalization, Other)
  Sender: JOHNSON AND JOHNSON
  Company Number: US-JNJFOC-20250438580

PATIENT
  Age: 4 Decade
  Sex: Female
  Weight: 80.286 kg

DRUGS (5)
  1. VELETRI [Suspect]
     Active Substance: EPOPROSTENOL
     Indication: Pulmonary arterial hypertension
     Dosage: VELETRI 1.5MG VIAL INTRAVENOUS
     Route: 042
  2. VELETRI [Suspect]
     Active Substance: EPOPROSTENOL
     Dosage: VELETRI 1.5MG VIAL INTRAVENOUS
     Route: 042
  3. VELETRI [Suspect]
     Active Substance: EPOPROSTENOL
     Route: 042
  4. WINREVAIR [Suspect]
     Active Substance: SOTATERCEPT-CSRK
     Indication: Product used for unknown indication
  5. AMBRISENTAN [Concomitant]
     Active Substance: AMBRISENTAN
     Indication: Product used for unknown indication

REACTIONS (16)
  - Cardiac failure [Unknown]
  - Pulmonary hypertension [Unknown]
  - Central venous catheterisation [Unknown]
  - Vascular device occlusion [Unknown]
  - Complication associated with device [Unknown]
  - Flushing [Not Recovered/Not Resolved]
  - Urticaria [Not Recovered/Not Resolved]
  - Migraine [Unknown]
  - Device alarm issue [Unknown]
  - Product administration interrupted [Unknown]
  - Pain in jaw [Unknown]
  - Erythema [Unknown]
  - Headache [Not Recovered/Not Resolved]
  - Pain in extremity [Unknown]
  - Ear pain [Unknown]
  - Dyspnoea exertional [Not Recovered/Not Resolved]

NARRATIVE: CASE EVENT DATE: 20220101
